FAERS Safety Report 6986300-X (Version None)
Quarter: 2010Q3

REPORT INFORMATION
  Report Type: 
  Country: None (occurrence: None)
  Receive Date: 20100915
  Receipt Date: 20090803
  Transmission Date: 20110219
  Serious: No
  Sender: FDA-Public Use
  Company Number: US-WYE-H09913209

PATIENT
  Age: 49 Year
  Sex: Female

DRUGS (7)
  1. PRISTIQ [Suspect]
     Indication: DEPRESSION
     Route: 048
     Dates: start: 20090616
  2. TRANXENE [Concomitant]
  3. NEBIVOLOL [Concomitant]
  4. ST. JOHN'S WORT [Concomitant]
  5. ALEVE (CAPLET) [Concomitant]
  6. CYMBALTA [Concomitant]
  7. SOMA [Concomitant]

REACTIONS (4)
  - ABDOMINAL PAIN UPPER [None]
  - BONE PAIN [None]
  - CHEST PAIN [None]
  - HEADACHE [None]
